FAERS Safety Report 8973698 (Version 5)
Quarter: 2013Q1

REPORT INFORMATION
  Report Type: Report from Study
  Country: IT (occurrence: IT)
  Receive Date: 20121218
  Receipt Date: 20130308
  Transmission Date: 20140127
  Serious: Yes (Life-Threatening, Hospitalization, Other)
  Sender: FDA-Public Use
  Company Number: IT-ALEXION PHARMACEUTICALS INC.-A201202398

PATIENT
  Age: 78 None
  Sex: Female
  Weight: 69.84 kg

DRUGS (31)
  1. SOLIRIS 300MG [Suspect]
     Indication: MICROSCOPIC POLYANGIITIS
     Dosage: 600 MG, QWX4
     Route: 042
     Dates: start: 20121012, end: 20121102
  2. SOLIRIS 300MG [Suspect]
     Indication: VASCULITIS
     Dosage: 900 MG, Q2W
     Route: 042
     Dates: start: 20121109
  3. SOLIRIS 300MG [Suspect]
     Indication: OFF LABEL USE
  4. CYCLOPHOSPHAMIDE [Suspect]
     Indication: VASCULITIS
     Dosage: 50 MG, QD
     Route: 048
     Dates: start: 20120927, end: 20121016
  5. CYCLOPHOSPHAMIDE [Suspect]
     Dosage: 50 MG, QD 5 DAYS A WEEK
     Route: 048
     Dates: start: 20121105, end: 20121124
  6. BACTRIM [Suspect]
     Indication: ANTIBIOTIC PROPHYLAXIS
     Dosage: 960 MG, QD
     Route: 048
     Dates: start: 20121105, end: 20121203
  7. BISOPROLOL [Concomitant]
     Dosage: 5 MG, UNK
  8. DELTACORTENE [Concomitant]
     Dosage: 25 MG, UNK
  9. FUROSEMIDE [Concomitant]
     Dosage: 25 MG, UNK
  10. FLUCONAZOLE [Concomitant]
     Dosage: 100 MG, BID
     Dates: start: 20121007, end: 20121014
  11. LEVOFLOXACIN [Concomitant]
     Dosage: UNK
     Dates: start: 20121009, end: 20121016
  12. AMIODARONE [Concomitant]
     Dosage: UNK
     Dates: start: 20121010, end: 20121017
  13. AMIODARONE [Concomitant]
     Dosage: 200 MG, UNK
  14. RANITIDINE [Concomitant]
     Dosage: UNK
     Dates: start: 20121011, end: 20121016
  15. RANITIDINE [Concomitant]
     Dosage: 150 MG, BID
  16. FRAGMIN [Concomitant]
  17. EPOETIN [Concomitant]
  18. HUMULIN L [Concomitant]
     Dosage: 8 IU, TID
  19. NITRODERM MATRIX [Concomitant]
     Dosage: 10 MG, UNK
     Route: 062
  20. ASA [Concomitant]
     Dosage: 100 MG, UNK
  21. ATORVASTATIN [Concomitant]
     Dosage: 20 MG, UNK
  22. CALCIUM CARBONATE [Concomitant]
     Dosage: 1 G, BID
  23. CALCITRIOL [Concomitant]
     Dosage: 0.25 MG, UNK
  24. CIPROXIN [Concomitant]
     Dosage: 250 MG, UNK
     Dates: start: 20121018, end: 20121123
  25. LANTUS [Concomitant]
     Dosage: 12 IU, UNK
  26. ERYTHROPOIETIN [Concomitant]
     Dosage: 4000 IU, UNK
  27. PLAVIX [Concomitant]
     Dosage: UNK
     Dates: start: 20121018, end: 20121025
  28. MEROPENEM [Concomitant]
     Indication: URINARY TRACT INFECTION
     Dosage: 500 MG, BID
     Dates: end: 20121130
  29. MEROPENEM [Concomitant]
     Indication: KLEBSIELLA INFECTION
     Dosage: 500 MG, BID
     Dates: start: 20121211
  30. HUMULIN R [Concomitant]
     Dosage: 8 IU, TID
  31. FILGRASTIM [Concomitant]
     Dosage: 1 VIAL QD

REACTIONS (8)
  - Agranulocytosis [Recovered/Resolved]
  - Myocardial infarction [Recovered/Resolved]
  - Leukopenia [Recovered/Resolved]
  - Drug interaction [Unknown]
  - Thrombocytopenia [Unknown]
  - Urinary tract infection [Unknown]
  - Haemolysis [Unknown]
  - Off label use [Unknown]
